FAERS Safety Report 7932982-5 (Version None)
Quarter: 2011Q4

REPORT INFORMATION
  Report Type: 
  Country: None (occurrence: None)
  Receive Date: 20111122
  Receipt Date: 20111116
  Transmission Date: 20120403
  Serious: Yes (Death, Hospitalization)
  Sender: FDA-Public Use
  Company Number: PHEH2011US00581

PATIENT
  Sex: Male

DRUGS (1)
  1. EXJADE [Suspect]
     Dosage: 1750 MG, QD
     Route: 048
     Dates: start: 20110601

REACTIONS (5)
  - OESOPHAGEAL VARICES HAEMORRHAGE [None]
  - HAEMORRHAGE [None]
  - PNEUMONIA [None]
  - PYREXIA [None]
  - DEVICE RELATED INFECTION [None]
